FAERS Safety Report 17097652 (Version 1)
Quarter: 2019Q4

REPORT INFORMATION
  Report Type: Spontaneous
  Country: US (occurrence: US)
  Receive Date: 20191105
  Receipt Date: 20191105
  Transmission Date: 20200122
  Serious: Yes (Hospitalization)
  Sender: FDA-Public Use
  Company Number: None

PATIENT
  Sex: Female

DRUGS (16)
  1. ROSUVASTATIN. [Concomitant]
     Active Substance: ROSUVASTATIN
  2. CLONIDINE. [Concomitant]
     Active Substance: CLONIDINE
  3. AMBIEN [Concomitant]
     Active Substance: ZOLPIDEM TARTRATE
  4. HYDROXYUREA. [Concomitant]
     Active Substance: HYDROXYUREA
  5. PRAMIPEXOLE. [Concomitant]
     Active Substance: PRAMIPEXOLE
  6. METFORMIN [Concomitant]
     Active Substance: METFORMIN HYDROCHLORIDE
  7. TRAMADOL. [Concomitant]
     Active Substance: TRAMADOL
  8. PROCARDIA X1 [Concomitant]
  9. DULOXETINE. [Concomitant]
     Active Substance: DULOXETINE
  10. LOSARTAN/HCT [Concomitant]
     Active Substance: HYDROCHLOROTHIAZIDE\LOSARTAN POTASSIUM
  11. ATENOLOL. [Concomitant]
     Active Substance: ATENOLOL
  12. JARDIANCE [Concomitant]
     Active Substance: EMPAGLIFLOZIN
  13. POT GLUCONATE [Concomitant]
  14. LEVOCETIRIZINE [Suspect]
     Active Substance: LEVOCETIRIZINE
  15. IMATINIB MES 400MG [Suspect]
     Active Substance: IMATINIB MESYLATE
     Indication: CHRONIC MYELOID LEUKAEMIA
     Route: 048
     Dates: start: 20190823
  16. MONTELUKAST [Concomitant]
     Active Substance: MONTELUKAST SODIUM

REACTIONS (3)
  - Electrolyte imbalance [None]
  - Diarrhoea [None]
  - Nausea [None]
